FAERS Safety Report 8599502-6 (Version None)
Quarter: 2012Q3

REPORT INFORMATION
  Report Type: 
  Country: None (occurrence: None)
  Receive Date: 20120816
  Receipt Date: 20120523
  Transmission Date: 20120928
  Serious: No
  Sender: FDA-Public Use
  Company Number: US-ALLERGAN-1207294US

PATIENT
  Age: 60 Year
  Sex: Female

DRUGS (2)
  1. PROPYLENE GLYCOL [Concomitant]
     Indication: DRY EYE
     Dosage: 2 GTT, PRN
     Route: 047
     Dates: start: 20120522
  2. LASTACAFT [Suspect]
     Indication: HYPERSENSITIVITY
     Dosage: 2 GTT, BID
     Route: 047
     Dates: start: 20120522

REACTIONS (1)
  - SOMNOLENCE [None]
